FAERS Safety Report 7348453-3 (Version None)
Quarter: 2011Q1

REPORT INFORMATION
  Report Type: 
  Country: None (occurrence: None)
  Receive Date: 20110313
  Receipt Date: 20110302
  Transmission Date: 20110831
  Serious: Yes (Other)
  Sender: FDA-Public Use
  Company Number: GB-B.I. PHARMACEUTICALS,INC./RIDGEFIELD-2011-UK-00049UK

PATIENT
  Age: 38 Year
  Sex: Female
  Weight: 81 kg

DRUGS (5)
  1. LANSOPRAZOLE [Concomitant]
     Dosage: 30 MG
     Route: 048
     Dates: start: 20090921
  2. IBUPROFEN [Concomitant]
     Dosage: 1800 MG
     Route: 048
  3. PARACETAMOL [Concomitant]
     Dosage: 500 MG
     Route: 048
     Dates: start: 20090203
  4. MOBIC TABLETS 15MG (14598/0003) [Suspect]
     Indication: RHEUMATOID ARTHRITIS
     Dosage: 15 MG
     Route: 048
     Dates: start: 20101116, end: 20101220
  5. DIHYDROCODEINE BITARTRATE INJ [Concomitant]
     Dosage: 2 DF
     Route: 048
     Dates: start: 20090724

REACTIONS (7)
  - PARALYSIS [None]
  - PAIN [None]
  - DRUG HYPERSENSITIVITY [None]
  - PARAESTHESIA [None]
  - WAXY FLEXIBILITY [None]
  - HEADACHE [None]
  - TINNITUS [None]
